FAERS Safety Report 22270658 (Version 1)
Quarter: 2023Q2

REPORT INFORMATION
  Report Type: Spontaneous
  Country: US (occurrence: None)
  Receive Date: 20230430
  Receipt Date: 20230430
  Transmission Date: 20230721
  Serious: Yes (Hospitalization, Other)
  Sender: FDA-Public Use
  Company Number: None

PATIENT
  Age: 45 Year
  Sex: Male
  Weight: 73.8 kg

DRUGS (1)
  1. TIANEPTINE [Suspect]
     Active Substance: TIANEPTINE
     Indication: Anxiety
     Dosage: FREQUENCY : ONCE;?
     Route: 048
     Dates: start: 20230427, end: 20230427

REACTIONS (4)
  - Anxiety [None]
  - Syncope [None]
  - Respiratory arrest [None]
  - Near death experience [None]

NARRATIVE: CASE EVENT DATE: 20230427
